FAERS Safety Report 4758031-8 (Version None)
Quarter: 2005Q3

REPORT INFORMATION
  Report Type: 
  Country: None (occurrence: None)
  Receive Date: 20050830
  Receipt Date: 20050818
  Transmission Date: 20060218
  Serious: Yes (Hospitalization)
  Sender: FDA-Public Use
  Company Number: 2005PV001079

PATIENT
  Age: 68 Year
  Sex: Male
  Weight: 117.9352 kg

DRUGS (4)
  1. BYETTA [Suspect]
     Indication: DIABETES MELLITUS NON-INSULIN-DEPENDENT
     Dosage: SEE IMAGE, SC
     Route: 058
     Dates: start: 20050601, end: 20050101
  2. BYETTA [Suspect]
     Indication: DIABETES MELLITUS NON-INSULIN-DEPENDENT
     Dosage: SEE IMAGE, SC
     Route: 058
     Dates: start: 20050101
  3. AVANDIA [Concomitant]
  4. PRANDIN [Concomitant]

REACTIONS (9)
  - DIARRHOEA [None]
  - DISORIENTATION [None]
  - DIZZINESS [None]
  - ERUCTATION [None]
  - FATIGUE [None]
  - HEART RATE IRREGULAR [None]
  - ORAL INTAKE REDUCED [None]
  - VOMITING [None]
  - WEIGHT DECREASED [None]
